FAERS Safety Report 11875640 (Version 1)
Quarter: 2015Q4

REPORT INFORMATION
  Report Type: Spontaneous
  Country: US (occurrence: US)
  Receive Date: 20151229
  Receipt Date: 20151229
  Transmission Date: 20160305
  Serious: Yes (Hospitalization, Other)
  Sender: FDA-Public Use
  Company Number: PHHY2015US165478

PATIENT
  Age: 48 Year
  Sex: Male
  Weight: 160 kg

DRUGS (6)
  1. LAMOTRIGINE. [Concomitant]
     Active Substance: LAMOTRIGINE
     Indication: SCHIZOAFFECTIVE DISORDER
     Dosage: 200 MG, QD
     Route: 065
  2. ARIPIPRAZOLE. [Concomitant]
     Active Substance: ARIPIPRAZOLE
     Dosage: 30 MG, QD
     Route: 065
  3. CLOZAPINE. [Suspect]
     Active Substance: CLOZAPINE
     Indication: SCHIZOAFFECTIVE DISORDER
     Dosage: 200 MG AT BEDTIME AND 100 MG IN THE MORNING
     Route: 065
     Dates: start: 201006
  4. CLOZAPINE. [Suspect]
     Active Substance: CLOZAPINE
     Dosage: 100 MG IN THE MORNING, 100 MG AT BEDTIME
     Route: 065
  5. BENZTROPINE [Concomitant]
     Active Substance: BENZTROPINE
     Indication: SCHIZOAFFECTIVE DISORDER
     Dosage: 1 MG, TID
     Route: 065
  6. ARIPIPRAZOLE. [Concomitant]
     Active Substance: ARIPIPRAZOLE
     Indication: SCHIZOAFFECTIVE DISORDER
     Dosage: 15 MG, QD
     Route: 065

REACTIONS (8)
  - Left ventricular dysfunction [Not Recovered/Not Resolved]
  - Cardiomyopathy [Recovering/Resolving]
  - Chest discomfort [Unknown]
  - Mitral valve incompetence [Not Recovered/Not Resolved]
  - Cardiac ventricular thrombosis [Recovering/Resolving]
  - Bundle branch block left [Unknown]
  - Chest pain [Unknown]
  - Dyspnoea [Recovering/Resolving]
